FAERS Safety Report 9368959 (Version 2)
Quarter: 2013Q3

REPORT INFORMATION
  Report Type: Spontaneous
  Country: CA (occurrence: CA)
  Receive Date: 20130626
  Receipt Date: 20130826
  Transmission Date: 20140515
  Serious: Yes (Hospitalization)
  Sender: FDA-Public Use
  Company Number: CA-SHIRE-ALL1-2013-04171

PATIENT
  Age: 67 Year
  Sex: Female
  Weight: 68 kg

DRUGS (32)
  1. FOSRENOL [Suspect]
     Indication: HYPERPHOSPHATAEMIA
     Dosage: 1000 MG, 3X/DAY:TID
     Route: 048
     Dates: start: 201209
  2. ASPIRIN [Concomitant]
     Indication: PRODUCT USED FOR UNKNOWN INDICATION
     Dosage: 81 MG, 1X/DAY:QD
     Route: 048
     Dates: start: 20121113
  3. ARANESP [Concomitant]
     Indication: PRODUCT USED FOR UNKNOWN INDICATION
     Dosage: 60 ?G, OTHER (EVERY FRIDAY INTRADIALYSIS)
     Route: 042
  4. DOCUSATE SODIUM [Concomitant]
     Indication: PRODUCT USED FOR UNKNOWN INDICATION
     Dosage: 100 MG, 2X/DAY:BID
     Route: 048
     Dates: start: 20130110
  5. FLUTICASONE [Concomitant]
     Indication: PRODUCT USED FOR UNKNOWN INDICATION
     Dosage: 500 ?G, 2X/DAY:BID
     Route: 055
  6. SALMETEROL [Concomitant]
     Indication: PRODUCT USED FOR UNKNOWN INDICATION
     Dosage: 25/250 MCG/METERED DOSE INHALER, 2X/DAY:BID
     Route: 055
     Dates: start: 20130221
  7. FUROSEMIDE [Concomitant]
     Indication: PRODUCT USED FOR UNKNOWN INDICATION
     Dosage: 80 MG, 1X/DAY:QD (PM)
     Route: 048
     Dates: start: 20130209
  8. NYSTATIN [Concomitant]
     Indication: PRODUCT USED FOR UNKNOWN INDICATION
     Dosage: UNK, UNKNOWN
     Route: 065
  9. PANTOPRAZOLE [Concomitant]
     Indication: PRODUCT USED FOR UNKNOWN INDICATION
     Dosage: 40 MG, 1X/DAY:QD (HS)
     Route: 048
     Dates: start: 20130110
  10. PREDNISONE [Concomitant]
     Indication: PRODUCT USED FOR UNKNOWN INDICATION
     Dosage: UNK, UNKNOWN
     Route: 065
  11. RALOXIFENE [Concomitant]
     Indication: PRODUCT USED FOR UNKNOWN INDICATION
     Dosage: 60 MG, 1X/DAY:QD (HS)
     Route: 048
     Dates: start: 20130110
  12. RANIBIZUMAB [Concomitant]
     Indication: PRODUCT USED FOR UNKNOWN INDICATION
     Dosage: 10 MG/ML, OTHER (BOTH EYES MONTHLY)
     Route: 047
     Dates: start: 20130620
  13. TIOTROPIUM [Concomitant]
     Indication: PRODUCT USED FOR UNKNOWN INDICATION
     Dosage: 18 ?G, 1X/DAY:QD (AM)
     Route: 055
     Dates: start: 20111229
  14. REPLAVITE                          /00058902/ [Concomitant]
     Indication: PRODUCT USED FOR UNKNOWN INDICATION
     Dosage: UNK, UNKNOWN
     Route: 065
  15. ZINC [Concomitant]
     Indication: PRODUCT USED FOR UNKNOWN INDICATION
     Dosage: 50 MG, OTHER (3X/WK AFTER DIALYSIS)
     Route: 048
     Dates: start: 20130110
  16. VITAMIN B COMPLEX W C              /02146701/ [Concomitant]
     Indication: PRODUCT USED FOR UNKNOWN INDICATION
     Dosage: 1 DF, 1X/DAY:QD
     Route: 048
     Dates: start: 20130110
  17. ALBUMIN [Concomitant]
     Indication: PRODUCT USED FOR UNKNOWN INDICATION
     Dosage: 1-2 UNITS, AS REQ^D (EVERY DIALYSIS, PRN INTRADIALYSIS)
     Route: 042
     Dates: start: 20120412
  18. ALTEPLASE [Concomitant]
     Indication: PRODUCT USED FOR UNKNOWN INDICATION
     Dosage: 2 ML, AS REQ^D (INTRADIALYSIS AND POSTDIALYSIS)
     Route: 042
     Dates: start: 20111227
  19. HEPARIN SODIUM [Concomitant]
     Indication: PRODUCT USED FOR UNKNOWN INDICATION
     Dosage: 1000 ML, AS REQ^D (EVERY DIALYSIS, PRN PREDIALYSIS)
     Route: 042
     Dates: start: 20130405
  20. HEPATITIS B VACCINE [Concomitant]
     Indication: IMMUNISATION
     Dosage: 40 ?G, OTHER (1ST 07-MAR-2013, 2ND 22-APR-2013)
     Route: 030
     Dates: start: 20130307
  21. IPRATROPIUM BROMIDE [Concomitant]
     Indication: PRODUCT USED FOR UNKNOWN INDICATION
     Dosage: 250 ?G, OTHER (Q4H INTRADIALYSIS)
     Route: 055
     Dates: start: 20130226
  22. QUININE SULPHATE [Concomitant]
     Indication: PRODUCT USED FOR UNKNOWN INDICATION
     Dosage: 300 MG (1-2 CAP), OTHER (Q4H PRN PREDIALYSIS, INTRADIALYSIS)
     Route: 048
     Dates: start: 20130502
  23. SALBUTAMOL [Concomitant]
     Indication: PRODUCT USED FOR UNKNOWN INDICATION
     Dosage: UNK UNK (5 MG OR 100 MCG), AS REQ^D (Q1H INTRADIALYSIS OR Q4H)
     Route: 055
     Dates: start: 20120214
  24. SODIUM CITRATE [Concomitant]
     Indication: PRODUCT USED FOR UNKNOWN INDICATION
     Dosage: 2.2 ML, UNKNOWN (POST DIALYSIS)
     Route: 042
     Dates: start: 20120112
  25. ACETAMINOPHEN [Concomitant]
     Indication: PRODUCT USED FOR UNKNOWN INDICATION
     Dosage: UNK (325-650 MG), AS REQ^D (Q4H)
     Route: 048
     Dates: start: 20111128
  26. DIPHENHYDRAMINE [Concomitant]
     Indication: PRODUCT USED FOR UNKNOWN INDICATION
     Dosage: 25 MG, AS REQ^D (BID)
     Route: 048
     Dates: start: 20130110
  27. HYDROXYZINE HYDROCHLORIDE [Concomitant]
     Indication: PRURITUS
     Dosage: UNK (25-50 MG), AS REQ^D (Q8H)
     Route: 048
     Dates: start: 20121127
  28. NITROGLYCERINE [Concomitant]
     Indication: ANGINA PECTORIS
     Dosage: 0.4 MG (1 SPRAY), AS REQ^D (EVERY 5 MINS UP TO 3 DOSES)
     Route: 060
     Dates: start: 20120214
  29. PROCHLORPERAZINE [Concomitant]
     Indication: PRODUCT USED FOR UNKNOWN INDICATION
     Dosage: UNK (5-10 MG), AS REQ^D (Q8H)
     Route: 048
     Dates: start: 20120619
  30. OXAZEPAM [Concomitant]
     Indication: PRODUCT USED FOR UNKNOWN INDICATION
     Dosage: UNK (15-30 MG), AS REQ^D (TID HS)
     Route: 048
     Dates: start: 20120922
  31. SENOKOT-S [Concomitant]
     Indication: PRODUCT USED FOR UNKNOWN INDICATION
     Dosage: 1 DF (8.6 MG/50 MG), AS REQ^D (DAILY)
     Route: 048
     Dates: start: 20130110
  32. ATARAX                             /00058401/ [Concomitant]
     Indication: PRURITUS
     Dosage: 25 MG, AS REQ^D (1-2 TABS Q 8HRS PRN)
     Route: 048

REACTIONS (2)
  - Chest pain [Recovered/Resolved]
  - Wrong technique in drug usage process [Recovered/Resolved]
